FAERS Safety Report 11011114 (Version 2)
Quarter: 2015Q2

REPORT INFORMATION
  Report Type: Spontaneous
  Country: US (occurrence: US)
  Receive Date: 20150410
  Receipt Date: 20150626
  Transmission Date: 20150821
  Serious: Yes (Other)
  Sender: FDA-Public Use
  Company Number: US-ASTRAZENECA-2015SE32280

PATIENT
  Sex: Female

DRUGS (1)
  1. SYMBICORT [Suspect]
     Active Substance: BUDESONIDE\FORMOTEROL FUMARATE DIHYDRATE
     Dosage: 160MCG/4.5MCG, 2 PUFFS BID
     Route: 055

REACTIONS (6)
  - Nervousness [Unknown]
  - Device issue [Unknown]
  - Oxygen saturation decreased [Unknown]
  - Underdose [Unknown]
  - Memory impairment [Unknown]
  - Anxiety [Unknown]
